FAERS Safety Report 4954399-8 (Version None)
Quarter: 2006Q1

REPORT INFORMATION
  Report Type: 
  Country: None (occurrence: None)
  Receive Date: 20060322
  Receipt Date: 20060307
  Transmission Date: 20060701
  Serious: Yes (Disabling)
  Sender: FDA-Public Use
  Company Number: 2006-BP-02573RO

PATIENT
  Age: 18 Year
  Sex: Male

DRUGS (11)
  1. METHOTREXATE [Suspect]
     Indication: ACUTE LYMPHOCYTIC LEUKAEMIA
     Dosage: (3 IN 1 WK), IT
     Route: 037
  2. CYTARABINE [Suspect]
     Indication: ACUTE LYMPHOCYTIC LEUKAEMIA
     Dosage: 3 IN 1 WK), IT
     Route: 037
  3. CYCLOPHOSPHAMIDE 9CYCLOPHOSPHAMIDE) [Concomitant]
  4. DEXAMETHASONE [Concomitant]
  5. L-ASPARAGINASE (ASPARAGINASE) [Concomitant]
  6. VINCRISTINE [Concomitant]
  7. DAUNORUBICIN HCL [Concomitant]
  8. PREDNISOLONE [Concomitant]
  9. MERCAPTOPURINE [Concomitant]
  10. VINDESINE (VINDESINE) [Concomitant]
  11. ETOPOSIDE [Concomitant]

REACTIONS (12)
  - ACUTE LYMPHOCYTIC LEUKAEMIA RECURRENT [None]
  - APLASIA [None]
  - FAECAL INCONTINENCE [None]
  - HYPOREFLEXIA [None]
  - NEUROTOXICITY [None]
  - NUCLEAR MAGNETIC RESONANCE IMAGING ABNORMAL [None]
  - PARAPARESIS [None]
  - SENSORY DISTURBANCE [None]
  - SENSORY LOSS [None]
  - SPINAL CORD OEDEMA [None]
  - STEM CELL TRANSPLANT [None]
  - URINARY INCONTINENCE [None]
